FAERS Safety Report 7841002-2 (Version None)
Quarter: 2011Q4

REPORT INFORMATION
  Report Type: 
  Country: None (occurrence: None)
  Receive Date: 20111021
  Receipt Date: 20111021
  Transmission Date: 20120403
  Serious: Yes (Hospitalization)
  Sender: FDA-Public Use
  Company Number: None

PATIENT
  Sex: Male

DRUGS (2)
  1. PREZISTA [Suspect]
     Indication: HIV INFECTION
     Dosage: PREZISTA 600MG BID PO
     Route: 048
     Dates: start: 20101212, end: 20111014
  2. NORVIR [Suspect]
     Dosage: NORVIR 100MG QD PO
     Route: 048
     Dates: start: 20101212, end: 20111014

REACTIONS (1)
  - MYOCARDIAL INFARCTION [None]
